FAERS Safety Report 9123683 (Version 2)
Quarter: 2013Q2

REPORT INFORMATION
  Report Type: Report from Study
  Country: KR (occurrence: KR)
  Receive Date: 20130227
  Receipt Date: 20130510
  Transmission Date: 20140414
  Serious: Yes (Hospitalization, Other)
  Sender: FDA-Public Use
  Company Number: KR-B.I. PHARMACEUTICALS,INC./RIDGEFIELD-2013-CS-00181RK

PATIENT
  Age: 70 Year
  Sex: Male
  Weight: 58.4 kg

DRUGS (6)
  1. TWYNSTA [Suspect]
     Indication: HYPERTENSION
     Dosage: TEMISARTAN+AMLODIPINE:40MG+5MG
     Route: 048
     Dates: start: 20121122
  2. RENEXIN (CILOSTAZOL/GINKGO) [Concomitant]
     Indication: CEREBRAL INFARCTION
     Dosage: 200MG/160MG
     Route: 048
     Dates: start: 20110627, end: 20130422
  3. ASTRIX [Concomitant]
     Indication: CEREBRAL INFARCTION
     Dosage: 100 MG
     Route: 048
     Dates: start: 20101227, end: 20130422
  4. NEW VAST [Concomitant]
     Indication: HYPERLIPIDAEMIA
     Dosage: 40 MG
     Route: 048
     Dates: start: 20091124
  5. REMINYL PR [Concomitant]
     Indication: VASCULAR DEMENTIA
     Dosage: 16 MG
     Route: 048
     Dates: start: 20120823
  6. DUMIROX [Concomitant]
     Indication: DEPRESSED MOOD
     Dosage: 50 MG
     Route: 048
     Dates: start: 20101227

REACTIONS (2)
  - Vomiting [Recovered/Resolved]
  - Transitional cell carcinoma [Recovered/Resolved]
